FAERS Safety Report 7854280-0 (Version None)
Quarter: 2011Q4

REPORT INFORMATION
  Report Type: 
  Country: None (occurrence: None)
  Receive Date: 20111026
  Receipt Date: 20111019
  Transmission Date: 20120403
  Serious: Yes (Death)
  Sender: FDA-Public Use
  Company Number: JP-ELI_LILLY_AND_COMPANY-JP201110005057

PATIENT

DRUGS (3)
  1. GEMZAR [Suspect]
     Indication: URETHRAL CANCER METASTATIC
     Dosage: 1000 MG/M2, OTHER
     Route: 042
  2. CISPLATIN [Concomitant]
     Indication: URETHRAL CANCER METASTATIC
     Dosage: 70 MG/M2, OTHER
     Route: 042
  3. PACLITAXEL [Concomitant]
     Indication: URETHRAL CANCER METASTATIC
     Dosage: 80 MG/M2, OTHER
     Route: 042

REACTIONS (1)
  - CEREBRAL INFARCTION [None]
